FAERS Safety Report 5731147-5 (Version None)
Quarter: 2008Q2

REPORT INFORMATION
  Report Type: 
  Country: None (occurrence: None)
  Receive Date: 20080505
  Receipt Date: 20080424
  Transmission Date: 20081010
  Serious: Yes (Hospitalization)
  Sender: FDA-Public Use
  Company Number: 2007-03814

PATIENT
  Age: 57 Year
  Sex: Female
  Weight: 100 kg

DRUGS (15)
  1. VELCADE [Suspect]
     Indication: MULTIPLE MYELOMA
     Dosage: 2.70 MG, INTRAVENOUS
     Route: 042
     Dates: start: 20071023, end: 20071102
  2. DEXAMETHASONE TAB [Suspect]
     Indication: MULTIPLE MYELOMA
     Dosage: 20 MG, ORAL
     Route: 048
     Dates: start: 20071023, end: 20071103
  3. ESOMEPRAZOLE (ESOMEPRAZOLE) [Concomitant]
  4. MAXOLON [Concomitant]
  5. TEMAZEPAM [Concomitant]
  6. AMLODIPINE [Concomitant]
  7. FUROSEMIDE [Concomitant]
  8. OXYCODONE HCL [Concomitant]
  9. PAROXETINE HCL [Concomitant]
  10. PROCHLORPERAZINE [Concomitant]
  11. VALACYCLOVIR [Concomitant]
  12. FENTANYL [Concomitant]
  13. OMEPRAZOLE [Concomitant]
  14. CEFEPIME [Concomitant]
  15. CIPROFLOXACIN [Concomitant]

REACTIONS (7)
  - CATHETER RELATED COMPLICATION [None]
  - ENTEROBACTER SEPSIS [None]
  - ESCHERICHIA URINARY TRACT INFECTION [None]
  - GASTRIC ANTRAL VASCULAR ECTASIA [None]
  - KLEBSIELLA INFECTION [None]
  - THROMBOCYTOPENIA [None]
  - URINARY TRACT INFECTION BACTERIAL [None]
